FAERS Safety Report 8594204 (Version 2)
Quarter: 2013Q3

REPORT INFORMATION
  Report Type: Spontaneous
  Country: US (occurrence: US)
  Receive Date: 20120604
  Receipt Date: 20130809
  Transmission Date: 20140515
  Serious: Yes (Hospitalization, Other)
  Sender: FDA-Public Use
  Company Number: US-ROCHE-1024490

PATIENT
  Age: 29 Year
  Sex: Male
  Weight: 68.1 kg

DRUGS (5)
  1. ACCUTANE [Suspect]
     Indication: ACNE
     Route: 065
     Dates: start: 1980
  2. ACCUTANE [Suspect]
     Route: 065
     Dates: start: 199112, end: 199205
  3. ACCUTANE [Suspect]
     Route: 065
     Dates: start: 1995, end: 1996
  4. ACCUTANE [Suspect]
     Route: 065
     Dates: start: 1996, end: 1997
  5. ASPIRIN [Concomitant]

REACTIONS (7)
  - Crohn^s disease [Unknown]
  - Small intestinal obstruction [Unknown]
  - Colitis ulcerative [Unknown]
  - Inflammatory bowel disease [Unknown]
  - Intestinal haemorrhage [Unknown]
  - Anxiety [Unknown]
  - Sinusitis [Unknown]
